FAERS Safety Report 7774804-1 (Version None)
Quarter: 2011Q3

REPORT INFORMATION
  Report Type: 
  Country: None (occurrence: None)
  Receive Date: 20110923
  Receipt Date: 20110920
  Transmission Date: 20111222
  Serious: Yes (Other)
  Sender: FDA-Public Use
  Company Number: CA-ROCHE-801068

PATIENT
  Sex: Female
  Weight: 108.9 kg

DRUGS (12)
  1. FOLIC ACID [Concomitant]
  2. TOCILIZUMAB [Suspect]
     Indication: RHEUMATOID ARTHRITIS
     Route: 042
     Dates: start: 20110721
  3. ALTACE [Concomitant]
  4. CYMBALTA [Concomitant]
  5. METHOTREXATE [Concomitant]
     Route: 058
  6. VOLTAREN [Concomitant]
  7. FERROUS SULFATE TAB [Concomitant]
  8. VITAMIN C + D [Concomitant]
  9. RABEPRAZOLE SODIUM [Concomitant]
  10. PLAQUENIL [Concomitant]
  11. PREDNISONE [Concomitant]
  12. CALCIUM CARBONATE [Concomitant]

REACTIONS (1)
  - HAEMOLYTIC ANAEMIA [None]
